FAERS Safety Report 7838336-4 (Version None)
Quarter: 2011Q4

REPORT INFORMATION
  Report Type: 
  Country: None (occurrence: None)
  Receive Date: 20111024
  Receipt Date: 20111011
  Transmission Date: 20120403
  Serious: Yes (Congenital Anomaly)
  Sender: FDA-Public Use
  Company Number: US-GILEAD-2010-0030840

PATIENT

DRUGS (8)
  1. DOXYCYCLINE [Concomitant]
  2. METRONIDAZOLE [Concomitant]
  3. AMOXICILLIN [Concomitant]
  4. IBUPROFEN [Concomitant]
  5. TENOFOVIR DISOPROXIL FUMARATE [Suspect]
  6. FERROUS SULFATE TAB [Concomitant]
  7. ACETAMINOPHEN [Concomitant]
  8. FOLIC ACID [Concomitant]

REACTIONS (1)
  - ANKYLOGLOSSIA CONGENITAL [None]
